FAERS Safety Report 18863364 (Version 3)
Quarter: 2021Q1

REPORT INFORMATION
  Report Type: Spontaneous
  Country: US (occurrence: US)
  Receive Date: 20210209
  Receipt Date: 20210309
  Transmission Date: 20210420
  Serious: No
  Sender: FDA-Public Use
  Company Number: US-APOTEX-2021AP002031

PATIENT
  Sex: Female

DRUGS (1)
  1. FENTANYL TRANSDERMAL SYSTEM [Suspect]
     Active Substance: FENTANYL
     Indication: PAIN
     Dosage: 1 DOSAGE FORM (5 PATCH), EVERY 72 HOURS
     Route: 065

REACTIONS (3)
  - Application site vesicles [Unknown]
  - Device adhesion issue [Unknown]
  - Application site pruritus [Unknown]
